FAERS Safety Report 7311772-0 (Version None)
Quarter: 2011Q1

REPORT INFORMATION
  Report Type: 
  Country: None (occurrence: None)
  Receive Date: 20110224
  Receipt Date: 20110221
  Transmission Date: 20110831
  Serious: Yes (Other)
  Sender: FDA-Public Use
  Company Number: BR-BAYER-2010-006156

PATIENT
  Sex: Female
  Weight: 43 kg

DRUGS (1)
  1. YASMIN [Suspect]
     Indication: CONTRACEPTION
     Dosage: UNK
     Route: 048
     Dates: start: 20080101

REACTIONS (2)
  - DYSGEUSIA [None]
  - LIVER DISORDER [None]
